FAERS Safety Report 13894373 (Version 1)
Quarter: 2017Q3

REPORT INFORMATION
  Report Type: Spontaneous
  Country: TW (occurrence: TW)
  Receive Date: 20170822
  Receipt Date: 20170822
  Transmission Date: 20171127
  Serious: Yes (Other)
  Sender: FDA-Public Use
  Company Number: TW-TERSERA THERAPEUTICS, LLC-2024950

PATIENT
  Age: 53 Year
  Sex: Female

DRUGS (12)
  1. ZOLADEX [Suspect]
     Active Substance: GOSERELIN ACETATE
     Indication: PRODUCT USED FOR UNKNOWN INDICATION
     Route: 058
  2. FULVESTRANT. [Concomitant]
     Active Substance: FULVESTRANT
  3. PALBOCICLIB [Concomitant]
     Active Substance: PALBOCICLIB
  4. GEMCITABINE [Concomitant]
     Active Substance: GEMCITABINE\GEMCITABINE HYDROCHLORIDE
  5. ERIBULIN [Concomitant]
     Active Substance: ERIBULIN
  6. FEMARA [Concomitant]
     Active Substance: LETROZOLE
  7. CISPLATIN. [Concomitant]
     Active Substance: CISPLATIN
  8. EVEROLIMUS [Concomitant]
     Active Substance: EVEROLIMUS
  9. TAMOXIFEN CITRATE. [Concomitant]
     Active Substance: TAMOXIFEN CITRATE
  10. TAXOL [Concomitant]
     Active Substance: PACLITAXEL
  11. XELODA [Concomitant]
     Active Substance: CAPECITABINE
  12. NAVELBINE [Concomitant]
     Active Substance: VINORELBINE TARTRATE

REACTIONS (4)
  - Fatigue [Unknown]
  - Leukopenia [Unknown]
  - Anaemia [Unknown]
  - Malignant neoplasm progression [Unknown]

NARRATIVE: CASE EVENT DATE: 20090101
